FAERS Safety Report 4590950-8 (Version None)
Quarter: 2005Q1

REPORT INFORMATION
  Report Type: 
  Country: None (occurrence: None)
  Receive Date: 20050222
  Receipt Date: 20050222
  Transmission Date: 20050727
  Serious: Yes (Hospitalization)
  Sender: FDA-Public Use
  Company Number: None

PATIENT
  Age: 70 Year
  Sex: Male
  Weight: 84.8226 kg

DRUGS (8)
  1. LUPRON [Suspect]
     Indication: PROSTATE CANCER
     Dosage: 30 MG / 4 MONTH / IM
     Route: 030
     Dates: start: 20030116
  2. LUPRON [Suspect]
     Indication: PROSTATE CANCER
     Dosage: 30 MG / 4 MONTH / IM
     Route: 030
     Dates: start: 20030514
  3. FLUTAMIDE [Suspect]
     Indication: PROSTATE CANCER
     Dosage: 250 MG/TID/ PO
     Route: 048
     Dates: start: 20030116, end: 20030924
  4. METOPROLOL [Concomitant]
  5. LOPERAMIDE HCL [Concomitant]
  6. SIMVASTATIN [Concomitant]
  7. PANTROPRAZOLE [Concomitant]
  8. TAMSULOSIN [Concomitant]

REACTIONS (17)
  - ABDOMINAL ABSCESS [None]
  - ADHESION [None]
  - ANASTOMOTIC LEAK [None]
  - BACTERIAL INFECTION [None]
  - BLADDER DISORDER [None]
  - COLONIC OBSTRUCTION [None]
  - COLONIC POLYP [None]
  - CULTURE WOUND POSITIVE [None]
  - DIVERTICULUM [None]
  - EROSIVE OESOPHAGITIS [None]
  - GASTROINTESTINAL DISORDER [None]
  - HAEMATEMESIS [None]
  - INFLAMMATION [None]
  - POST PROCEDURAL COMPLICATION [None]
  - POSTOPERATIVE INFECTION [None]
  - RECTAL LESION [None]
  - SECRETION DISCHARGE [None]
